FAERS Safety Report 22184088 (Version 2)
Quarter: 2023Q2

REPORT INFORMATION
  Report Type: Report from Study
  Country: US (occurrence: US)
  Receive Date: 20230407
  Receipt Date: 20230519
  Transmission Date: 20230721
  Serious: No
  Sender: FDA-Public Use
  Company Number: US-002147023-NVSC2023US078088

PATIENT
  Sex: Male

DRUGS (6)
  1. METHOTREXATE [Suspect]
     Active Substance: METHOTREXATE
     Indication: Psoriasis
     Dosage: UNK
     Route: 065
  2. MOMETASONE [Suspect]
     Active Substance: MOMETASONE
     Indication: Psoriasis
     Dosage: 0.1 %, BID
     Route: 061
  3. CLOBETASOL [Suspect]
     Active Substance: CLOBETASOL
     Indication: Psoriasis
     Dosage: UNK
     Route: 061
  4. CLOBETASOL [Suspect]
     Active Substance: CLOBETASOL
     Dosage: UNK
     Route: 061
  5. CALCIPOTRIENE AND BETAMETHASONE DIPROPIONATE [Suspect]
     Active Substance: BETAMETHASONE DIPROPIONATE\CALCIPOTRIENE
     Indication: Psoriasis
     Dosage: UNK
     Route: 065
  6. FLUOCINONIDE [Concomitant]
     Active Substance: FLUOCINONIDE
     Indication: Psoriasis
     Dosage: UNK
     Route: 065

REACTIONS (2)
  - Psoriasis [Unknown]
  - Product use in unapproved indication [Unknown]
